FAERS Safety Report 8199886-7 (Version None)
Quarter: 2012Q1

REPORT INFORMATION
  Report Type: 
  Country: None (occurrence: None)
  Receive Date: 20120312
  Receipt Date: 20120306
  Transmission Date: 20120608
  Serious: No
  Sender: FDA-Public Use
  Company Number: US-BIOGENIDEC-2012BI008157

PATIENT
  Sex: Female

DRUGS (1)
  1. TYSABRI [Suspect]
     Indication: MULTIPLE SCLEROSIS
     Route: 042
     Dates: start: 20080829, end: 20110830

REACTIONS (6)
  - PAIN OF SKIN [None]
  - BLADDER PROLAPSE [None]
  - MYALGIA [None]
  - URINARY TRACT INFECTION [None]
  - SINUSITIS [None]
  - UTERINE PROLAPSE [None]
